FAERS Safety Report 24019515 (Version 1)
Quarter: 2024Q2

REPORT INFORMATION
  Report Type: Report from Study
  Country: NL (occurrence: NL)
  Receive Date: 20240627
  Receipt Date: 20240627
  Transmission Date: 20240715
  Serious: Yes (Death)
  Sender: FDA-Public Use
  Company Number: NL-ABBVIE-5674742

PATIENT
  Age: 74 Year
  Sex: Male

DRUGS (5)
  1. CARBIDOPA\LEVODOPA [Suspect]
     Active Substance: CARBIDOPA\LEVODOPA
     Indication: Parkinson^s disease
     Route: 050
     Dates: start: 20080404
  2. CARBIDOPA\LEVODOPA [Suspect]
     Active Substance: CARBIDOPA\LEVODOPA
     Dosage: MD 10.1 CD 3.9 ED 2.50?REMAINS AT 16 HOURS
     Route: 050
     Dates: start: 20230710, end: 20231025
  3. CARBIDOPA\LEVODOPA [Suspect]
     Active Substance: CARBIDOPA\LEVODOPA
     Dosage: MD 10.1 CD 4.1 ED 2.50?REMAINS AT 16 HOURS
     Route: 050
     Dates: start: 20231025
  4. BENSERAZIDE HYDROCHLORIDE\LEVODOPA [Concomitant]
     Active Substance: BENSERAZIDE HYDROCHLORIDE\LEVODOPA
     Indication: Parkinson^s disease
     Dosage: FREQUENCY TEXT: TWICE
  5. SIALANAR [Concomitant]
     Indication: Dysphagia
     Dosage: DRINK

REACTIONS (5)
  - Hip fracture [Fatal]
  - Pneumonia [Fatal]
  - Device dislocation [Recovered/Resolved]
  - Fall [Recovered/Resolved]
  - Parkinson^s disease [Fatal]

NARRATIVE: CASE EVENT DATE: 20240201
